FAERS Safety Report 9555148 (Version 1)
Quarter: 2013Q3

REPORT INFORMATION
  Report Type: Report from Study
  Country: FR (occurrence: FR)
  Receive Date: 20130926
  Receipt Date: 20130926
  Transmission Date: 20140515
  Serious: Yes (Other)
  Sender: FDA-Public Use
  Company Number: FR-009507513-1309FRA008911

PATIENT
  Age: 54 Year
  Sex: Male

DRUGS (2)
  1. IMIPENEM (+) CILASTATIN SODIUM [Suspect]
  2. VANCOMYCIN [Suspect]

REACTIONS (1)
  - Drug reaction with eosinophilia and systemic symptoms [Unknown]
